FAERS Safety Report 7966921-8 (Version None)
Quarter: 2011Q4

REPORT INFORMATION
  Report Type: 
  Country: None (occurrence: None)
  Receive Date: 20111209
  Receipt Date: 20111201
  Transmission Date: 20120403
  Serious: Yes (Hospitalization)
  Sender: FDA-Public Use
  Company Number: FR-PFIZER INC-K201001517

PATIENT
  Age: 55 Year
  Sex: Male

DRUGS (7)
  1. DELORAZEPAM [Concomitant]
     Dosage: UNK
  2. LAMOTRIGINE [Concomitant]
     Dosage: UNK
  3. TEGRETOL [Concomitant]
     Dosage: UNK
  4. ASPIRIN [Concomitant]
     Dosage: UNK
  5. ALTACE [Suspect]
     Indication: HYPERTENSION
     Dosage: 2.5 MG, 1X/DAY
     Route: 048
     Dates: start: 20101207, end: 20101214
  6. DOXAZOSIN [Concomitant]
     Dosage: UNK
  7. AMLODIPINE [Concomitant]
     Dosage: UNK

REACTIONS (5)
  - ARTHRALGIA [None]
  - PRURITUS [None]
  - BURNING SENSATION [None]
  - ERYTHEMA [None]
  - MYALGIA [None]
